FAERS Safety Report 19447923 (Version 1)
Quarter: 2021Q2

REPORT INFORMATION
  Report Type: Spontaneous
  Country: US (occurrence: US)
  Receive Date: 20210622
  Receipt Date: 20210622
  Transmission Date: 20210717
  Serious: No
  Sender: FDA-Public Use
  Company Number: None

PATIENT
  Sex: Female

DRUGS (14)
  1. LMETHYLFOLATE 7.5 MG TAB [Concomitant]
  2. FOLIC ACID 1 MG TAB [Concomitant]
  3. BIOTIN [Concomitant]
     Active Substance: BIOTIN
  4. FUROSEMIDE. [Concomitant]
     Active Substance: FUROSEMIDE
  5. CALCIUM 500TAB [Concomitant]
  6. GABAPENTIN 800 MG TAB [Concomitant]
  7. OMEPRAZOLE 40 MG CAP [Concomitant]
  8. POTASSIUM 20 MEQ TAB [Concomitant]
  9. SPIRONOLACTONE 25 MG TAB [Concomitant]
  10. VITAMIN B12 TAB [Concomitant]
  11. VITAMIN B12 TAB [Concomitant]
  12. MORPHINE ER 15 [Concomitant]
  13. MAG CITRATE 100 MG TAB [Concomitant]
  14. IBRANCE [Suspect]
     Active Substance: PALBOCICLIB
     Indication: BREAST CANCER
     Route: 048

REACTIONS (1)
  - Disease progression [None]
